FAERS Safety Report 8778954 (Version 3)
Quarter: 2012Q4

REPORT INFORMATION
  Report Type: Report from Study
  Country: FR (occurrence: FR)
  Receive Date: 20120912
  Receipt Date: 20120924
  Transmission Date: 20130627
  Serious: Yes (Hospitalization)
  Sender: FDA-Public Use
  Company Number: FR-TEVA-357453USA

PATIENT
  Age: 76 Year
  Sex: Male
  Weight: 92 kg

DRUGS (11)
  1. TREANDA [Suspect]
     Indication: MANTLE CELL LYMPHOMA
     Dosage: UID/QD
     Route: 041
     Dates: start: 20120724
  2. VELCADE [Suspect]
     Indication: MANTLE CELL LYMPHOMA
     Dosage: UID/QD
     Route: 058
     Dates: start: 20120724, end: 20120803
  3. MABTHERA [Suspect]
     Indication: MANTLE CELL LYMPHOMA
     Dosage: UID/QD
     Route: 041
     Dates: start: 20120724
  4. DEXAMETHASONE [Suspect]
     Indication: MANTLE CELL LYMPHOMA
     Dosage: UID/QD
     Route: 041
     Dates: start: 20120725
  5. GRANOCYTE [Suspect]
     Dosage: 34 IU/ml Unknown/D
     Route: 058
  6. APROVEL [Concomitant]
     Indication: HYPERTENSION
     Dosage: 300 Milligram Daily;
     Route: 048
  7. PRAVASTATIN [Concomitant]
     Indication: HYPERCHOLESTEROLAEMIA
     Dosage: 20 Milligram Daily;
     Route: 048
  8. FASTURTEC [Concomitant]
     Indication: PREMEDICATION
     Dosage: 15 Milligram Daily;
     Dates: start: 20120724, end: 20120724
  9. DAFALGAN [Concomitant]
     Dosage: 1000 Milligram Daily;
     Dates: start: 20120724, end: 20120724
  10. HYDROCORTISONE [Concomitant]
     Dosage: 100 Milligram Daily;
     Dates: start: 20120724, end: 20120724
  11. XYZALL [Concomitant]
     Dosage: 5 Milligram Daily;
     Dates: start: 20120724, end: 20120724

REACTIONS (3)
  - Bronchopneumonia [Recovered/Resolved]
  - Pyrexia [Recovered/Resolved]
  - Drug hypersensitivity [Recovered/Resolved]
